FAERS Safety Report 9067722 (Version 2)
Quarter: 2013Q1

REPORT INFORMATION
  Report Type: Spontaneous
  Country: KR (occurrence: KR)
  Receive Date: 20130206
  Receipt Date: 20130226
  Transmission Date: 20140127
  Serious: Yes (Other)
  Sender: FDA-Public Use
  Company Number: KR-PFIZER INC-2013047181

PATIENT
  Age: 37 Year
  Sex: Female

DRUGS (12)
  1. VORICONAZOLE [Suspect]
     Indication: ANTIFUNGAL PROPHYLAXIS
     Dosage: 200 MG, 2X/DAY
     Route: 048
  2. FLUCONAZOLE [Concomitant]
     Indication: ANTIFUNGAL PROPHYLAXIS
  3. CEFEPIME HYDROCHLORIDE [Concomitant]
     Indication: FEBRILE NEUTROPENIA
  4. MEROPENEM [Concomitant]
     Indication: FEBRILE NEUTROPENIA
  5. ITRACONAZOLE [Concomitant]
     Indication: ANTIFUNGAL PROPHYLAXIS
     Dosage: 200 MG, 2X/DAY
     Route: 042
  6. ITRACONAZOLE [Concomitant]
     Dosage: 200 MG, 1X/DAY
     Route: 042
  7. ITRACONAZOLE [Concomitant]
     Indication: ANTIFUNGAL PROPHYLAXIS
     Route: 048
  8. ITRACONAZOLE [Concomitant]
     Indication: ANTIFUNGAL PROPHYLAXIS
     Dosage: 200 MG, 2X/DAY
     Route: 048
  9. ISEPAMICIN [Concomitant]
     Indication: FEBRILE NEUTROPENIA
  10. CILASTATIN SODIUM W/IMIPENEM [Concomitant]
     Indication: FEBRILE NEUTROPENIA
  11. TEICOPLANIN [Concomitant]
     Indication: FEBRILE NEUTROPENIA
  12. AMPHOTERICIN B DEOXYCHOLATE [Concomitant]
     Indication: ANTIFUNGAL PROPHYLAXIS
     Dosage: 1 MG/KG, UNK
     Route: 042

REACTIONS (2)
  - Zygomycosis [Recovered/Resolved]
  - Pyrexia [Unknown]
